FAERS Safety Report 5976280-8 (Version None)
Quarter: 2008Q4

REPORT INFORMATION
  Report Type: 
  Country: None (occurrence: None)
  Receive Date: 20081126
  Receipt Date: 20080509
  Transmission Date: 20090506
  Serious: Yes (Other)
  Sender: FDA-Public Use
  Company Number: 2008BH004930

PATIENT
  Age: 57 Year
  Sex: Female
  Weight: 87.5442 kg

DRUGS (11)
  1. DIANEAL [Suspect]
     Indication: PERITONEAL DIALYSIS
     Dosage: IP
     Route: 033
  2. DIANEAL [Suspect]
     Indication: PERITONEAL DIALYSIS
     Dosage: IP
     Route: 033
  3. SULFA [Concomitant]
  4. PENICILLIN [Concomitant]
  5. LEVAQUIN [Concomitant]
  6. LYRICA [Concomitant]
  7. VIOXIN [Concomitant]
  8. CIPRO [Concomitant]
  9. ZOCOR [Concomitant]
  10. VITAMIN D SUPPLEMENT [Concomitant]
  11. CALCIUM SALT SUPPLEMENT [Concomitant]

REACTIONS (2)
  - PERITONITIS [None]
  - PROCEDURAL COMPLICATION [None]
